FAERS Safety Report 7592456-0 (Version None)
Quarter: 2011Q3

REPORT INFORMATION
  Report Type: 
  Country: None (occurrence: None)
  Receive Date: 20110706
  Receipt Date: 20110624
  Transmission Date: 20111222
  Serious: Yes (Hospitalization, Other)
  Sender: FDA-Public Use
  Company Number: US-BAYER-2011-029577

PATIENT
  Age: 38 Year
  Sex: Female
  Weight: 91 kg

DRUGS (7)
  1. ASCORBIC ACID [Concomitant]
  2. VITAMIN D [Concomitant]
  3. ZOLOFT [Concomitant]
  4. YAZ [Suspect]
     Indication: PRODUCT USED FOR UNKNOWN INDICATION
     Dosage: UNK
     Dates: start: 20060801, end: 20080601
  5. CHROMAGEN FORTE [Concomitant]
  6. ZOLPIDEM TARTRATE [Concomitant]
  7. AMITIZA [Concomitant]

REACTIONS (4)
  - PAIN [None]
  - EMOTIONAL DISTRESS [None]
  - INJURY [None]
  - PULMONARY EMBOLISM [None]
